FAERS Safety Report 19083135 (Version 2)
Quarter: 2021Q2

REPORT INFORMATION
  Report Type: Spontaneous
  Country: US (occurrence: US)
  Receive Date: 20210401
  Receipt Date: 20210408
  Transmission Date: 20210717
  Serious: No
  Sender: FDA-Public Use
  Company Number: US-BAYER-2021-115726

PATIENT
  Age: 71 Year
  Sex: Female

DRUGS (2)
  1. PEPCID [ALUMINIUM HYDROXIDE;MAGNESIUM TRISILICATE;SODIUM ALGINATE] [Concomitant]
     Dosage: UNK
  2. MIRALAX [Suspect]
     Active Substance: POLYETHYLENE GLYCOL 3350
     Dosage: UNK
     Dates: start: 202103

REACTIONS (2)
  - Illness [Unknown]
  - Oral discomfort [None]

NARRATIVE: CASE EVENT DATE: 202103
